FAERS Safety Report 4634244-0 (Version None)
Quarter: 2005Q2

REPORT INFORMATION
  Report Type: 
  Country: None (occurrence: None)
  Receive Date: 20050413
  Receipt Date: 20050406
  Transmission Date: 20051028
  Serious: Yes (Hospitalization)
  Sender: FDA-Public Use
  Company Number: PHBS2005NL04771

PATIENT
  Age: 26 Year
  Sex: Female

DRUGS (4)
  1. MALARONE [Suspect]
     Indication: MALARIA PROPHYLAXIS
  2. CYCLIZINE [Concomitant]
  3. ANTICOAGULANTS [Concomitant]
     Route: 048
  4. LAMISIL [Suspect]
     Indication: NAIL TINEA
     Route: 048

REACTIONS (2)
  - DRUG INTERACTION [None]
  - MALARIA [None]
